FAERS Safety Report 20810105 (Version 1)
Quarter: 2022Q2

REPORT INFORMATION
  Report Type: Spontaneous
  Country: US (occurrence: US)
  Receive Date: 20220510
  Receipt Date: 20220510
  Transmission Date: 20220721
  Serious: No
  Sender: FDA-Public Use
  Company Number: US-OYSTER POINT PHARMA, INC.-2022OYS00046

PATIENT
  Age: 75 Year
  Sex: Female
  Weight: 74.376 kg

DRUGS (4)
  1. TYRVAYA [Suspect]
     Active Substance: VARENICLINE TARTRATE
     Indication: Dry eye
     Dosage: 1 SPRAY, IN EACH NOSTRIL, 2X/DAY IN THE MORNING AND AT NIGHT
     Route: 045
     Dates: start: 20220115
  2. RESTASIS [Concomitant]
     Active Substance: CYCLOSPORINE
  3. BEPREVE [Concomitant]
     Active Substance: BEPOTASTINE BESILATE
  4. DUREZOL [Concomitant]
     Active Substance: DIFLUPREDNATE

REACTIONS (3)
  - Rhinorrhoea [Not Recovered/Not Resolved]
  - Therapeutic product effect incomplete [Not Recovered/Not Resolved]
  - Sneezing [Not Recovered/Not Resolved]

NARRATIVE: CASE EVENT DATE: 20220115
